FAERS Safety Report 8249654 (Version 8)
Quarter: 2012Q4

REPORT INFORMATION
  Report Type: 
  Country: JP (occurrence: JP)
  Receive Date: 20111117
  Receipt Date: 20121128
  Transmission Date: 20130627
  Serious: Yes (Hospitalization, Disabling)
  Sender: FDA-Public Use
  Company Number: JP-GLAXOSMITHKLINE-B0762475A

PATIENT
  Sex: Male

DRUGS (5)
  1. HEPSERA [Suspect]
     Indication: CHRONIC HEPATITIS B
     Dosage: 10MG Per day
     Route: 048
     Dates: start: 200409, end: 201111
  2. ZEFIX [Concomitant]
     Indication: CHRONIC HEPATITIS B
     Dosage: 100MG Per day
     Route: 048
     Dates: start: 200110, end: 201111
  3. NU-LOTAN [Concomitant]
     Dosage: 50MG Per day
     Route: 048
  4. ETODOLAC [Concomitant]
     Dosage: 200MG Twice per day
     Route: 048
  5. ANTAGOSTIN [Concomitant]
     Dosage: 1IUAX Twice per day
     Route: 048

REACTIONS (23)
  - Fanconi syndrome [Not Recovered/Not Resolved]
  - Osteomalacia [Unknown]
  - Rib fracture [Unknown]
  - Aminoaciduria [Unknown]
  - Renal impairment [Unknown]
  - Nephrosclerosis [Unknown]
  - Blood creatinine increased [Unknown]
  - Blood alkaline phosphatase increased [Unknown]
  - Arthralgia [Unknown]
  - Tibia fracture [Unknown]
  - Fibula fracture [Unknown]
  - Blood phosphorus decreased [Unknown]
  - Blood uric acid decreased [Unknown]
  - Glucose urine present [Unknown]
  - Urine calcium increased [Unknown]
  - Urine phosphorus increased [Unknown]
  - Urine uric acid increased [Unknown]
  - Limb discomfort [Unknown]
  - Pain [Unknown]
  - Blood phosphorus decreased [Unknown]
  - Glucose urine present [Unknown]
  - Metabolic acidosis [Unknown]
  - Hypouricaemia [Unknown]
